FAERS Safety Report 16867804 (Version 1)
Quarter: 2019Q3

REPORT INFORMATION
  Report Type: Spontaneous
  Country: CN (occurrence: CN)
  Receive Date: 20190930
  Receipt Date: 20190930
  Transmission Date: 20191005
  Serious: Yes (Other)
  Sender: FDA-Public Use
  Company Number: CN-ROCHE-2426391

PATIENT
  Age: 19 Month
  Sex: Male
  Weight: 10 kg

DRUGS (18)
  1. ROCEPHIN [Suspect]
     Active Substance: CEFTRIAXONE SODIUM
     Indication: INFLUENZA
     Route: 065
  2. COMPOUND PHOLCODINE [Concomitant]
     Indication: INFLUENZA
  3. AMBROXOL HYDROCHLORIDE [Concomitant]
     Active Substance: AMBROXOL HYDROCHLORIDE
     Route: 041
  4. METHYLPREDNISOLONE. [Concomitant]
     Active Substance: METHYLPREDNISOLONE
     Indication: INFLUENZA
     Route: 041
  5. PHENTOLAMINE [Concomitant]
     Active Substance: PHENTOLAMINE
     Indication: INFLUENZA
     Route: 041
  6. CEFUROXIME. [Concomitant]
     Active Substance: CEFUROXIME
     Indication: INFLUENZA
  7. IPRATROPIUM BROMIDE. [Concomitant]
     Active Substance: IPRATROPIUM BROMIDE
     Indication: INFLUENZA
  8. SALBUTAMOL [Concomitant]
     Active Substance: ALBUTEROL
     Indication: INFLUENZA
  9. AMBROXOL HYDROCHLORIDE [Concomitant]
     Active Substance: AMBROXOL HYDROCHLORIDE
     Route: 041
  10. BUDESONIDE. [Concomitant]
     Active Substance: BUDESONIDE
     Indication: INFLUENZA
  11. DEXAMETHASONE. [Concomitant]
     Active Substance: DEXAMETHASONE
     Indication: INFLUENZA
     Route: 040
  12. AMBROXOL HYDROCHLORIDE;CLENBUTEROL HYDROCHLORIDE [Concomitant]
     Indication: INFLUENZA
  13. HUMAN IMMUNOGLOBULIN [Concomitant]
     Active Substance: HUMAN IMMUNOGLOBULIN G
     Indication: INFLUENZA
     Route: 041
  14. TAMIFLU [Suspect]
     Active Substance: OSELTAMIVIR PHOSPHATE
     Indication: INFLUENZA
     Route: 048
  15. KETOTIFEN [Concomitant]
     Active Substance: KETOTIFEN
     Indication: INFLUENZA
     Route: 048
  16. ROXITHROMYCIN [Concomitant]
     Active Substance: ROXITHROMYCIN
     Indication: INFLUENZA
  17. AZITHROMYCIN ANHYDROUS. [Concomitant]
     Active Substance: AZITHROMYCIN ANHYDROUS
     Indication: INFLUENZA
  18. AMOXICILLIN AND CLAVULANATE POTASSIUM [Concomitant]
     Active Substance: AMOXICILLIN\CLAVULANATE POTASSIUM
     Indication: INFLUENZA
     Route: 048

REACTIONS (1)
  - Obliterative bronchiolitis [Unknown]
